FAERS Safety Report 17547853 (Version 1)
Quarter: 2020Q1

REPORT INFORMATION
  Report Type: Spontaneous
  Country: US (occurrence: US)
  Receive Date: 20200316
  Receipt Date: 20200316
  Transmission Date: 20200409
  Serious: Yes (Hospitalization)
  Sender: FDA-Public Use
  Company Number: 2020-ECIPHARMA-000001-01

PATIENT
  Age: 41 Year
  Sex: Female
  Weight: 110 kg

DRUGS (1)
  1. METHIMAZOLE TABLETS 5 MG [Suspect]
     Active Substance: METHIMAZOLE
     Indication: HYPERTHYROIDISM
     Route: 048

REACTIONS (8)
  - Dyspnoea [Recovered/Resolved]
  - Nausea [Recovered/Resolved]
  - Lethargy [Recovered/Resolved]
  - Chest pain [Recovered/Resolved]
  - Decreased appetite [Recovered/Resolved]
  - Bradycardia [Recovered/Resolved]
  - Abdominal pain upper [Recovered/Resolved]
  - Product substitution issue [Recovered/Resolved]

NARRATIVE: CASE EVENT DATE: 20200103
